FAERS Safety Report 7459318-0 (Version None)
Quarter: 2011Q2

REPORT INFORMATION
  Report Type: 
  Country: None (occurrence: None)
  Receive Date: 20110505
  Receipt Date: 20110503
  Transmission Date: 20111010
  Serious: Yes (Other)
  Sender: FDA-Public Use
  Company Number: US-PFIZER INC-2011066874

PATIENT
  Sex: Female

DRUGS (4)
  1. SIMVASTATIN [Concomitant]
     Indication: BLOOD CHOLESTEROL INCREASED
     Dosage: 20 MG, 1X/DAY
  2. LEVOTHYROXINE [Concomitant]
     Indication: HYPOTHYROIDISM
     Dosage: 50 MG, 1X/DAY
  3. TOVIAZ [Suspect]
     Indication: POLLAKIURIA
     Dosage: 4 MG, 2X/WEEK
     Route: 048
     Dates: start: 20110309, end: 20110319
  4. NIFEDIPINE [Concomitant]
     Indication: HYPERTENSION
     Dosage: 60 MG, 1X/DAY

REACTIONS (1)
  - URINARY RETENTION [None]
